FAERS Safety Report 9515478 (Version 1)
Quarter: 2013Q1

REPORT INFORMATION
  Report Type: Spontaneous
  Country: US (occurrence: None)
  Receive Date: 20130305
  Receipt Date: 20130305
  Transmission Date: 20140127
  Serious: Yes (Other)
  Sender: FDA-Public Use
  Company Number: 163-21880-12020684

PATIENT
  Age: 62 Year
  Sex: Female

DRUGS (1)
  1. REVLIMID [Suspect]
     Indication: PLASMA CELL MYELOMA
     Dosage: 15 MG 21 IN 28 D PO.
     Route: 048
     Dates: start: 20111123

REACTIONS (14)
  - Skin hyperpigmentation [None]
  - Cough [None]
  - Fatigue [None]
  - Anaemia [None]
  - Pain in extremity [None]
  - Pruritus generalised [None]
  - Hyperaesthesia [None]
  - Onychoclasis [None]
  - Weight increased [None]
  - Neuropathy peripheral [None]
  - Swelling [None]
  - Pain in extremity [None]
  - Hypoaesthesia [None]
  - Skin burning sensation [None]
